FAERS Safety Report 8985464 (Version 1)
Quarter: 2012Q4

REPORT INFORMATION
  Report Type: 
  Country: US (occurrence: US)
  Receive Date: 20121226
  Receipt Date: 20121226
  Transmission Date: 20130627
  Serious: Yes (Disabling)
  Sender: FDA-Public Use
  Company Number: US-009507513-1212USA009158

PATIENT

DRUGS (1)
  1. PROPECIA [Suspect]
     Indication: ANDROGENETIC ALOPECIA
     Dosage: 1 mg, UNK
     Route: 048
     Dates: start: 201008

REACTIONS (10)
  - Suicidal ideation [Unknown]
  - Libido decreased [Unknown]
  - Erectile dysfunction [Unknown]
  - Semen volume decreased [Unknown]
  - Semen analysis abnormal [Unknown]
  - Depression [Unknown]
  - Anxiety [Unknown]
  - Cognitive disorder [Unknown]
  - Fatigue [Unknown]
  - Lethargy [Unknown]
